FAERS Safety Report 5757965-5 (Version None)
Quarter: 2008Q2

REPORT INFORMATION
  Report Type: 
  Country: None (occurrence: None)
  Receive Date: 20080530
  Receipt Date: 20080525
  Transmission Date: 20081010
  Serious: Yes (Other)
  Sender: FDA-Public Use
  Company Number: 2007SP023713

PATIENT
  Age: 41 Year
  Sex: Male

DRUGS (2)
  1. REBETOL [Suspect]
     Indication: HEPATITIS C
     Dosage: PO
     Route: 048
     Dates: start: 19980101, end: 19980101
  2. INTERFERON ALFA (MANUFACTURER UNKNOWN) [Concomitant]
     Indication: HEPATITIS C
     Dates: start: 19980101, end: 19980101

REACTIONS (8)
  - ABDOMINAL PAIN UPPER [None]
  - APLASTIC ANAEMIA [None]
  - BLINDNESS UNILATERAL [None]
  - DEPRESSION [None]
  - FATIGUE [None]
  - LETHARGY [None]
  - NO THERAPEUTIC RESPONSE [None]
  - RETINAL TEAR [None]
